FAERS Safety Report 5153125-X (Version None)
Quarter: 2006Q4

REPORT INFORMATION
  Report Type: 
  Country: None (occurrence: None)
  Receive Date: 20061117
  Receipt Date: 20060906
  Transmission Date: 20070319
  Serious: Yes (Death, Hospitalization)
  Sender: FDA-Public Use
  Company Number: FR-GLAXOSMITHKLINE-B0438196A

PATIENT
  Age: 58 Year
  Sex: Male
  Weight: 83.7 kg

DRUGS (10)
  1. ALKERAN [Suspect]
     Indication: MULTIPLE MYELOMA
     Dosage: 10MG TWICE PER DAY
     Route: 048
     Dates: start: 20060807, end: 20060810
  2. SOLUPRED [Suspect]
     Indication: MULTIPLE MYELOMA
     Dosage: 80MG PER DAY
     Route: 048
     Dates: start: 20060807, end: 20060810
  3. TOCO 500 [Concomitant]
     Indication: AMYOTROPHIC LATERAL SCLEROSIS
     Dosage: 2UNIT PER DAY
     Route: 048
  4. DIFFU K [Concomitant]
     Indication: CONSTIPATION
     Dosage: 2UNIT PER DAY
     Route: 048
  5. DEBRIDAT [Concomitant]
     Dosage: 6UNIT PER DAY
     Route: 048
  6. ACETAMINOPHEN W/ PROPOXYPHENE HCL [Concomitant]
     Route: 065
  7. ZOMETA [Concomitant]
     Route: 042
     Dates: start: 20060727, end: 20060727
  8. FORLAX [Concomitant]
     Indication: CONSTIPATION
     Dosage: 1UNIT PER DAY
     Route: 048
  9. NEXIUM [Concomitant]
     Route: 048
     Dates: start: 20060821
  10. CETORNAN [Concomitant]
     Dosage: 1UNIT PER DAY

REACTIONS (12)
  - ABDOMINAL PAIN [None]
  - ANOREXIA [None]
  - CIRCULATORY COLLAPSE [None]
  - DIARRHOEA HAEMORRHAGIC [None]
  - DYSPHAGIA [None]
  - GASTROINTESTINAL PERFORATION [None]
  - GLOSSITIS [None]
  - HAEMORRHAGE [None]
  - HYPOTENSION [None]
  - OESOPHAGITIS [None]
  - ORAL FUNGAL INFECTION [None]
  - RECTAL HAEMORRHAGE [None]
